FAERS Safety Report 6657138-8 (Version None)
Quarter: 2010Q1

REPORT INFORMATION
  Report Type: 
  Country: None (occurrence: None)
  Receive Date: 20100330
  Receipt Date: 20100325
  Transmission Date: 20100710
  Serious: Yes (Life-Threatening, Hospitalization)
  Sender: FDA-Public Use
  Company Number: US-JNJFOC-20100307556

PATIENT
  Age: 56 Year
  Sex: Female

DRUGS (7)
  1. SIMPONI [Suspect]
     Indication: PSORIATIC ARTHROPATHY
     Route: 058
  2. SIMPONI [Suspect]
     Indication: PSORIASIS
     Route: 058
  3. METHOTREXATE [Concomitant]
     Indication: PSORIATIC ARTHROPATHY
  4. MORPHINE [Concomitant]
  5. SOMA [Concomitant]
  6. AMBIEN [Concomitant]
  7. BENICAR [Concomitant]

REACTIONS (5)
  - CHEST PAIN [None]
  - COUGH [None]
  - PULMONARY OEDEMA [None]
  - PYREXIA [None]
  - RESPIRATORY FAILURE [None]
